FAERS Safety Report 8851335 (Version 2)
Quarter: 2012Q4

REPORT INFORMATION
  Report Type: 
  Country: US (occurrence: US)
  Receive Date: 20121022
  Receipt Date: 20121207
  Transmission Date: 20130627
  Serious: No
  Sender: FDA-Public Use
  Company Number: US-009507513-1210USA006204

PATIENT

DRUGS (2)
  1. ISENTRESS [Suspect]
     Route: 048
  2. TRUVADA [Suspect]

REACTIONS (1)
  - Hepatic enzyme increased [Unknown]
